FAERS Safety Report 9476408 (Version 2)
Quarter: 2013Q4

REPORT INFORMATION
  Report Type: Spontaneous
  Country: FR (occurrence: FR)
  Receive Date: 20130826
  Receipt Date: 20131008
  Transmission Date: 20140711
  Serious: Yes (Life-Threatening, Hospitalization, Other)
  Sender: FDA-Public Use
  Company Number: FR-JNJFOC-20130811461

PATIENT
  Age: 0 Day
  Sex: Female
  Weight: 2.3 kg

DRUGS (8)
  1. EPITOMAX [Suspect]
     Indication: CONVULSION
     Route: 064
     Dates: end: 20130730
  2. RISPERDAL [Suspect]
     Indication: PRODUCT USED FOR UNKNOWN INDICATION
     Route: 064
  3. RISPERDAL [Suspect]
     Indication: PRODUCT USED FOR UNKNOWN INDICATION
     Route: 064
     Dates: start: 20130628, end: 20130730
  4. COCAINE [Suspect]
     Indication: PRODUCT USED FOR UNKNOWN INDICATION
     Route: 064
     Dates: end: 20130730
  5. METHADONE [Suspect]
     Indication: DRUG REHABILITATION
     Route: 064
  6. METHADONE [Suspect]
     Indication: DRUG REHABILITATION
     Route: 064
     Dates: start: 20130701, end: 20130730
  7. METHADONE [Suspect]
     Indication: DRUG REHABILITATION
     Route: 064
     Dates: start: 20130628, end: 20130701
  8. SKENAN [Suspect]
     Indication: DRUG DEPENDENCE
     Route: 064
     Dates: end: 20130730

REACTIONS (7)
  - Neonatal respiratory distress syndrome [Recovering/Resolving]
  - Foetal alcohol syndrome [Unknown]
  - Sedation [Recovering/Resolving]
  - Apgar score low [Recovered/Resolved]
  - Ecchymosis [Unknown]
  - Premature baby [Not Recovered/Not Resolved]
  - Foetal exposure during pregnancy [Recovered/Resolved]
